FAERS Safety Report 7109130-7 (Version None)
Quarter: 2010Q4

REPORT INFORMATION
  Report Type: 
  Country: None (occurrence: None)
  Receive Date: 20101117
  Receipt Date: 20101112
  Transmission Date: 20110411
  Serious: Yes (Other)
  Sender: FDA-Public Use
  Company Number: GB-PFIZER INC-2010148911

PATIENT
  Age: 40 Year
  Sex: Female

DRUGS (5)
  1. SIROLIMUS [Suspect]
     Dosage: 2 MG, 1X/DAY
  2. SIROLIMUS [Suspect]
     Dosage: 3 MG, 1X/DAY
  3. SIROLIMUS [Suspect]
     Dosage: 4 MG, 1X/DAY
  4. TACROLIMUS [Suspect]
     Dosage: 6 MG, 1X/DAY
  5. MYCOPHENOLATE MOFETIL [Suspect]
     Indication: IMMUNOSUPPRESSION
     Dosage: 360 MG, 1X/DAY

REACTIONS (1)
  - MOUTH ULCERATION [None]
